FAERS Safety Report 7509660-X (Version None)
Quarter: 2011Q2

REPORT INFORMATION
  Report Type: 
  Country: None (occurrence: None)
  Receive Date: 20110527
  Receipt Date: 20110513
  Transmission Date: 20111010
  Serious: Yes (Other)
  Sender: FDA-Public Use
  Company Number: BR-JNJFOC-20110507185

PATIENT
  Age: 48 Year
  Sex: Male

DRUGS (2)
  1. REMICADE [Suspect]
     Indication: RHEUMATOID ARTHRITIS
     Route: 042
     Dates: start: 20110513, end: 20110513
  2. REMICADE [Suspect]
     Route: 042
     Dates: start: 20090804

REACTIONS (5)
  - INFUSION RELATED REACTION [None]
  - LIP SWELLING [None]
  - DYSPNOEA [None]
  - TACHYCARDIA [None]
  - LARYNGEAL OEDEMA [None]
